FAERS Safety Report 5127520-9 (Version None)
Quarter: 2006Q4

REPORT INFORMATION
  Report Type: 
  Country: None (occurrence: None)
  Receive Date: 20061011
  Receipt Date: 20060925
  Transmission Date: 20070319
  Serious: Yes (Death)
  Sender: FDA-Public Use
  Company Number: 2006EU002689

PATIENT
  Age: 16 Year
  Sex: Female

DRUGS (6)
  1. PROGRAF [Suspect]
     Indication: STEM CELL TRANSPLANT
     Dosage: UNK
  2. CYCLOSPORINE [Suspect]
     Indication: STEM CELL TRANSPLANT
     Dosage: UNK,
  3. CORTICOSTEROIDS [Suspect]
     Indication: STEM CELL TRANSPLANT
     Dosage: UNK,
  4. MYCOPHENOLATE MOFETIL [Suspect]
     Indication: STEM CELL TRANSPLANT
  5. SIROLIMUS (SIROLIMUS) [Suspect]
     Indication: STEM CELL TRANSPLANT
     Dosage: UNK,
  6. ANTITHYMOCYTE IMMUNOGLOBULIN (ANTITHYMOCYTE IMMUNOGLOBULIN) [Suspect]
     Indication: STEM CELL TRANSPLANT
     Dosage: UNK,

REACTIONS (16)
  - ATELECTASIS [None]
  - BK VIRUS INFECTION [None]
  - BRONCHOPULMONARY ASPERGILLOSIS [None]
  - COLITIS [None]
  - COMPLICATIONS OF BONE MARROW TRANSPLANT [None]
  - CYSTITIS HAEMORRHAGIC [None]
  - CYTOMEGALOVIRUS INFECTION [None]
  - DIABETES MELLITUS [None]
  - GASTROINTESTINAL HAEMORRHAGE [None]
  - HAEMODYNAMIC INSTABILITY [None]
  - INFECTION IN AN IMMUNOCOMPROMISED HOST [None]
  - NEPHROPATHY [None]
  - RESPIRATORY FAILURE [None]
  - THERAPY NON-RESPONDER [None]
  - THROMBOSIS [None]
  - UPPER RESPIRATORY FUNGAL INFECTION [None]
